FAERS Safety Report 9462993 (Version 2)
Quarter: 2013Q3

REPORT INFORMATION
  Report Type: Spontaneous
  Country: US (occurrence: US)
  Receive Date: 20130816
  Receipt Date: 20130904
  Transmission Date: 20140515
  Serious: Yes (Other)
  Sender: FDA-Public Use
  Company Number: US-MERCK-1308USA006782

PATIENT
  Age: 45 Year
  Sex: Male
  Weight: 92.97 kg

DRUGS (5)
  1. JANUVIA [Suspect]
     Indication: TYPE 2 DIABETES MELLITUS
     Dosage: UNK
     Route: 048
     Dates: end: 201307
  2. SIMVASTATIN [Concomitant]
     Dosage: 80 MG, UNK
     Route: 048
  3. GLIPIZIDE [Concomitant]
     Dosage: 5 MG, UNK
     Route: 048
  4. PROPRANOLOL HYDROCHLORIDE [Concomitant]
     Dosage: 40 MG, BID
     Route: 048
  5. LISINOPRIL [Concomitant]
     Dosage: 10 MG, UNK
     Route: 048

REACTIONS (6)
  - Pancreatitis [Recovered/Resolved]
  - Fall [Unknown]
  - Gait disturbance [Unknown]
  - Ligament sprain [Unknown]
  - Ligament sprain [Unknown]
  - Hypertriglyceridaemia [Unknown]
